FAERS Safety Report 5664770-7 (Version None)
Quarter: 2008Q1

REPORT INFORMATION
  Report Type: 
  Country: None (occurrence: None)
  Receive Date: 20080314
  Receipt Date: 20080304
  Transmission Date: 20080703
  Serious: Yes (Death, Hospitalization)
  Sender: FDA-Public Use
  Company Number: HR-ROCHE-546387

PATIENT
  Age: 49 Year
  Sex: Female

DRUGS (11)
  1. PEGASYS [Suspect]
     Indication: HEPATITIS C
     Route: 058
     Dates: start: 20070907, end: 20080122
  2. PEGASYS [Suspect]
     Route: 058
     Dates: start: 20080123, end: 20080204
  3. COPEGUS [Suspect]
     Indication: HEPATITIS C
     Route: 048
     Dates: start: 20070907, end: 20080123
  4. EUTHROID-1 [Concomitant]
     Indication: HYPOTHYROIDISM
     Route: 048
  5. MARIVARIN [Concomitant]
     Dosage: DAILY.
     Route: 048
  6. FURSEMID [Concomitant]
     Dosage: 2 X 1 TBL.
  7. MEDROL [Concomitant]
  8. TENAX [Concomitant]
  9. BISOPROLOL FUMARATE [Concomitant]
  10. RANITIDINE [Concomitant]
     Dosage: TRADE NAME: PEPTORAN.
  11. 1 CONCOMITANT DRUG [Concomitant]
     Dosage: REPORTED AS LOSERTIC.

REACTIONS (2)
  - ANAEMIA [None]
  - CEREBRAL HAEMORRHAGE [None]
